FAERS Safety Report 20076648 (Version 6)
Quarter: 2022Q4

REPORT INFORMATION
  Report Type: Spontaneous
  Country: CA (occurrence: CA)
  Receive Date: 20211116
  Receipt Date: 20221123
  Transmission Date: 20230113
  Serious: Yes (Other)
  Sender: FDA-Public Use
  Company Number: CA-PFIZER INC-202100968398

PATIENT
  Age: 56 Year
  Sex: Female
  Weight: 96.4 kg

DRUGS (23)
  1. RUXIENCE [Suspect]
     Active Substance: RITUXIMAB-PVVR
     Indication: Dermatomyositis
     Dosage: EVERY 6 MONTHS
     Route: 042
     Dates: start: 20200620
  2. RUXIENCE [Suspect]
     Active Substance: RITUXIMAB-PVVR
     Indication: Granulomatosis with polyangiitis
     Dosage: X 1 DOSE
     Route: 042
     Dates: start: 20210812
  3. RUXIENCE [Suspect]
     Active Substance: RITUXIMAB-PVVR
     Indication: Antisynthetase syndrome
     Dosage: X 1 DOSE
     Route: 042
     Dates: start: 20211119
  4. RUXIENCE [Suspect]
     Active Substance: RITUXIMAB-PVVR
     Dosage: EVERY 6 MONTHS
     Route: 042
     Dates: start: 20220519
  5. RUXIENCE [Suspect]
     Active Substance: RITUXIMAB-PVVR
     Dosage: EVERY 6 MONTHS
     Route: 042
     Dates: start: 20220519
  6. RUXIENCE [Suspect]
     Active Substance: RITUXIMAB-PVVR
     Dosage: EVERY 6 MONTHS
     Route: 042
     Dates: start: 20221116
  7. RUXIENCE [Suspect]
     Active Substance: RITUXIMAB-PVVR
     Dosage: EVERY 6 MONTHS
     Route: 042
     Dates: start: 20221116
  8. RUXIENCE [Suspect]
     Active Substance: RITUXIMAB-PVVR
     Dosage: EVERY 6 MONTHS
     Route: 042
     Dates: start: 20221116
  9. ACETAMINOPHEN [Concomitant]
     Active Substance: ACETAMINOPHEN
     Indication: Premedication
     Dosage: 650 MG
     Route: 048
     Dates: start: 20210812
  10. CEPHALEXIN [Concomitant]
     Active Substance: CEPHALEXIN
     Indication: Folliculitis
     Dosage: 500 MG, QID X 1 WEEK
  11. DIPHENHYDRAMINE [Concomitant]
     Active Substance: DIPHENHYDRAMINE
     Indication: Premedication
     Dosage: 50 MG
     Route: 048
     Dates: start: 20210812
  12. METHYLPREDNISOLONE [Concomitant]
     Active Substance: METHYLPREDNISOLONE
     Indication: Premedication
     Dosage: 100 MG
     Route: 042
     Dates: start: 20210812
  13. PREDNISONE [Concomitant]
     Active Substance: PREDNISONE
     Indication: Periorbital oedema
     Dosage: 60 MG, DAILY, PO
     Route: 048
     Dates: start: 20190329
  14. PREDNISONE [Concomitant]
     Active Substance: PREDNISONE
     Dosage: 50 MG, AS NEEDED, TAPER
     Dates: start: 201909
  15. PREDNISONE [Concomitant]
     Active Substance: PREDNISONE
     Dosage: 5 MG, DAILY, PO, SINCE SATURDAY
     Route: 048
  16. PREDNISONE [Concomitant]
     Active Substance: PREDNISONE
     Dosage: 40 MG, DAILY X 1 MONTH, PO
     Route: 048
  17. PREDNISONE [Concomitant]
     Active Substance: PREDNISONE
     Dosage: 10 MG
  18. PANTOPRAZOLE [Concomitant]
     Active Substance: PANTOPRAZOLE
     Dosage: 40 MG, DAILY, PP.O
     Route: 048
  19. PERINDOPRIL [Concomitant]
     Active Substance: PERINDOPRIL
     Dosage: 2 MG, DAILY, P.O
     Route: 048
  20. SULFATRIM [Concomitant]
     Active Substance: SULFAMETHOXAZOLE\TRIMETHOPRIM
     Indication: Dermatomyositis
     Dosage: UNK
  21. VITAMIN D3 [Concomitant]
     Active Substance: CHOLECALCIFEROL
     Dosage: UNK
  22. VITAMIN C [Concomitant]
     Active Substance: ASCORBIC ACID
     Dosage: UNK
  23. VITAMIN B12 [Concomitant]
     Active Substance: CYANOCOBALAMIN
     Dosage: UNK

REACTIONS (30)
  - Dermatomyositis [Unknown]
  - Condition aggravated [Unknown]
  - Immunodeficiency [Unknown]
  - Immunosuppression [Unknown]
  - Blood pressure increased [Unknown]
  - Headache [Unknown]
  - Asthenia [Unknown]
  - Epistaxis [Unknown]
  - Exercise tolerance decreased [Unknown]
  - Gingival pain [Unknown]
  - Muscle spasms [Unknown]
  - Arthralgia [Unknown]
  - Musculoskeletal stiffness [Unknown]
  - Frustration tolerance decreased [Unknown]
  - Cough [Unknown]
  - Mucosal disorder [Unknown]
  - Breath sounds abnormal [Unknown]
  - Joint swelling [Unknown]
  - Ligament sprain [Unknown]
  - Lung diffusion test decreased [Unknown]
  - Myositis [Unknown]
  - Pain [Unknown]
  - Arthralgia [Unknown]
  - Loss of personal independence in daily activities [Unknown]
  - Refusal of vaccination [Unknown]
  - Anxiety [Unknown]
  - Eye infection [Recovered/Resolved]
  - COVID-19 [Recovered/Resolved]
  - Off label use [Unknown]
  - Off label use [Unknown]

NARRATIVE: CASE EVENT DATE: 20210101
